FAERS Safety Report 4629175-6 (Version None)
Quarter: 2005Q2

REPORT INFORMATION
  Report Type: 
  Country: None (occurrence: None)
  Receive Date: 20050404
  Receipt Date: 20050404
  Transmission Date: 20051028
  Serious: Yes (Life-Threatening)
  Sender: FDA-Public Use
  Company Number: None

PATIENT
  Age: 46 Year
  Sex: Female
  Weight: 70.3075 kg

DRUGS (2)
  1. TRANSDERM SCOP [Suspect]
     Indication: MOTION SICKNESS
     Dosage: 1 PATCH FOR 3 DAYS
     Dates: start: 20050219
  2. TRANSDERM SCOP [Suspect]
     Indication: PROPHYLAXIS
     Dosage: 1 PATCH FOR 3 DAYS
     Dates: start: 20050219

REACTIONS (26)
  - ASTHENIA [None]
  - CONFUSIONAL STATE [None]
  - CRYING [None]
  - DIFFICULTY IN WALKING [None]
  - DISTURBANCE IN ATTENTION [None]
  - DYSPHAGIA [None]
  - DYSPNOEA [None]
  - EYE IRRITATION [None]
  - FEAR [None]
  - FEELING ABNORMAL [None]
  - FEELING GUILTY [None]
  - GAIT DISTURBANCE [None]
  - HALLUCINATION [None]
  - HYPERSENSITIVITY [None]
  - INSOMNIA [None]
  - MENTAL DISORDER [None]
  - MORBID THOUGHTS [None]
  - NERVOUSNESS [None]
  - NIGHTMARE [None]
  - ORAL INTAKE REDUCED [None]
  - PANIC ATTACK [None]
  - PARANOIA [None]
  - POST-TRAUMATIC STRESS DISORDER [None]
  - SKIN REACTION [None]
  - SUICIDAL IDEATION [None]
  - TREMOR [None]
